FAERS Safety Report 9060382 (Version 3)
Quarter: 2013Q2

REPORT INFORMATION
  Report Type: Spontaneous
  Country: US (occurrence: US)
  Receive Date: 20130212
  Receipt Date: 20130405
  Transmission Date: 20140414
  Serious: Yes (Death, Life-Threatening, Hospitalization)
  Sender: FDA-Public Use
  Company Number: US-GILEAD-2013-0069558

PATIENT
  Sex: Female

DRUGS (2)
  1. LETAIRIS [Suspect]
     Indication: PULMONARY ARTERIAL HYPERTENSION
     Dosage: 5 MG, QD
     Route: 048
     Dates: start: 20121009
  2. LETAIRIS [Suspect]
     Indication: PICKWICKIAN SYNDROME

REACTIONS (6)
  - Cardiac arrest [Fatal]
  - Pulmonary hypertension [Fatal]
  - Acute respiratory failure [Unknown]
  - Dyspnoea [Unknown]
  - Pulmonary oedema [Unknown]
  - Oedema peripheral [Unknown]
